FAERS Safety Report 14125054 (Version 1)
Quarter: 2017Q4

REPORT INFORMATION
  Report Type: Spontaneous
  Country: IE (occurrence: IE)
  Receive Date: 20171025
  Receipt Date: 20171025
  Transmission Date: 20180321
  Serious: Yes (Other)
  Sender: FDA-Public Use
  Company Number: IE-TEVA-818022ROM

PATIENT
  Age: 57 Year
  Sex: Female

DRUGS (2)
  1. HYDROXYCHLOROQUINE [Interacting]
     Active Substance: HYDROXYCHLOROQUINE
     Indication: CUTANEOUS LUPUS ERYTHEMATOSUS
     Dosage: 5.7MG/KG REAL BODY WEIGHT; DAILY
     Route: 065
  2. ANASTROZOLE. [Suspect]
     Active Substance: ANASTROZOLE
     Route: 065

REACTIONS (3)
  - Toxicity to various agents [Unknown]
  - Retinal toxicity [Unknown]
  - Drug interaction [Unknown]
